FAERS Safety Report 7428392-X (Version None)
Quarter: 2011Q2

REPORT INFORMATION
  Report Type: 
  Country: None (occurrence: None)
  Receive Date: 20110418
  Receipt Date: 20110418
  Transmission Date: 20111010
  Serious: Yes (Hospitalization)
  Sender: FDA-Public Use
  Company Number: None

PATIENT
  Age: 38 Year
  Sex: Male

DRUGS (1)
  1. CHANTIX [Suspect]
     Indication: SMOKING CESSATION THERAPY
     Dosage: 1 TAB QDAY PO 1.5 MONTH
     Route: 048

REACTIONS (11)
  - IRRITABILITY [None]
  - AGGRESSION [None]
  - ALCOHOL USE [None]
  - DRUG WITHDRAWAL SYNDROME [None]
  - INSOMNIA [None]
  - FEELING ABNORMAL [None]
  - SUICIDAL IDEATION [None]
  - HYPERHIDROSIS [None]
  - ANGER [None]
  - ABNORMAL DREAMS [None]
  - HEART RATE INCREASED [None]
